FAERS Safety Report 9508558 (Version 1)
Quarter: 2013Q1

REPORT INFORMATION
  Report Type: Spontaneous
  Country: US (occurrence: None)
  Receive Date: 20130305
  Receipt Date: 20130305
  Transmission Date: 20140127
  Serious: Yes (Other)
  Sender: FDA-Public Use
  Company Number: 163-21880-12083079

PATIENT
  Age: 56 Year
  Sex: Male
  Weight: 80.74 kg

DRUGS (4)
  1. REVLIMID [Suspect]
     Indication: PLASMA CELL MYELOMA
     Dosage: 25 MG, 1 IN 1 D, PO
     Route: 048
     Dates: start: 20101001
  2. ASPIRIN BUFFERED ( ACETYLSALICYLIC ACID) ( UNKNOWN) [Concomitant]
  3. KRILL OIL ( LIPITAC) ( UNKNOWN) [Concomitant]
  4. CLARITIN ( LORATADINE) ( TABLETS) [Concomitant]

REACTIONS (2)
  - Skin discolouration [None]
  - Skin sensitisation [None]
